APPROVED DRUG PRODUCT: METRONIDAZOLE
Active Ingredient: METRONIDAZOLE
Strength: 1%
Dosage Form/Route: GEL;TOPICAL
Application: A212646 | Product #001 | TE Code: AB
Applicant: ALEMBIC PHARMACEUTICALS LTD
Approved: Sep 3, 2021 | RLD: No | RS: No | Type: RX